FAERS Safety Report 11679924 (Version 2)
Quarter: 2015Q4

REPORT INFORMATION
  Report Type: Spontaneous
  Country: US (occurrence: US)
  Receive Date: 20151027
  Receipt Date: 20151104
  Transmission Date: 20160304
  Serious: No
  Sender: FDA-Public Use
  Company Number: US-ELI_LILLY_AND_COMPANY-US201008009009

PATIENT
  Age: 70 Year
  Sex: Female

DRUGS (2)
  1. FORTEO [Suspect]
     Active Substance: TERIPARATIDE
     Indication: OSTEOPOROSIS
     Dosage: 20 UG, DAILY (1/D)
     Dates: start: 2010
  2. FORTEO [Suspect]
     Active Substance: TERIPARATIDE
     Dosage: 20 UG, DAILY (1/D)
     Dates: end: 201012

REACTIONS (12)
  - Bone loss [Unknown]
  - Decreased appetite [Unknown]
  - Pain in jaw [Unknown]
  - Weight decreased [Not Recovered/Not Resolved]
  - Weight gain poor [Unknown]
  - Oral discomfort [Unknown]
  - Intentional product misuse [Unknown]
  - Eating disorder [Unknown]
  - Nausea [Unknown]
  - Malaise [Unknown]
  - Abdominal discomfort [Unknown]
  - Asthenia [Unknown]

NARRATIVE: CASE EVENT DATE: 201012
